FAERS Safety Report 9641945 (Version 2)
Quarter: 2014Q1

REPORT INFORMATION
  Report Type: Spontaneous
  Country: GB (occurrence: GB)
  Receive Date: 20131023
  Receipt Date: 20140320
  Transmission Date: 20141002
  Serious: Yes (Hospitalization)
  Sender: FDA-Public Use
  Company Number: GB-TEVA-438485ISR

PATIENT
  Age: 67 Year
  Sex: Female
  Weight: 46 kg

DRUGS (5)
  1. GABAPENTIN [Suspect]
     Indication: BACK PAIN
     Dosage: INCREASING DOSE
     Route: 048
  2. OXYCONTIN [Concomitant]
     Indication: BACK PAIN
     Dosage: REDUCING DOSE
  3. ADIZEM-XL [Concomitant]
  4. QVAR [Concomitant]
     Route: 055
  5. VENTOLIN [Concomitant]
     Route: 055

REACTIONS (1)
  - Colitis ischaemic [Recovered/Resolved]
